FAERS Safety Report 21698954 (Version 2)
Quarter: 2022Q4

REPORT INFORMATION
  Report Type: Spontaneous
  Country: US (occurrence: US)
  Receive Date: 20221208
  Receipt Date: 20221222
  Transmission Date: 20230113
  Serious: No
  Sender: FDA-Public Use
  Company Number: US-MICRO LABS LIMITED-ML2022-05976

PATIENT
  Age: 75 Year
  Sex: Male

DRUGS (1)
  1. DORZOLAMIDE HYDROCHLORIDE [Suspect]
     Active Substance: DORZOLAMIDE HYDROCHLORIDE
     Indication: Glaucoma
     Dosage: ONE DROP IN EACH EYE, TWICE DAILY; AROUND 8 AM OR 9 AM IN THE MORNING AND 8 PM OR 9 PM IN THE NIGHT
     Route: 047
     Dates: start: 202211

REACTIONS (2)
  - Eye irritation [Not Recovered/Not Resolved]
  - Eyelid irritation [Not Recovered/Not Resolved]

NARRATIVE: CASE EVENT DATE: 20221101
